FAERS Safety Report 5926550-4 (Version None)
Quarter: 2008Q4

REPORT INFORMATION
  Report Type: 
  Country: None (occurrence: None)
  Receive Date: 20081022
  Receipt Date: 20081020
  Transmission Date: 20090506
  Serious: Yes (Other)
  Sender: FDA-Public Use
  Company Number: JP-BRISTOL-MYERS SQUIBB COMPANY-14375471

PATIENT
  Age: 70 Year
  Sex: Male

DRUGS (3)
  1. CISPLATIN [Suspect]
     Indication: PANCREATIC CARCINOMA
     Dosage: ON DAYS 1 AND 8.
  2. S-1 [Suspect]
     Indication: PANCREATIC CARCINOMA
     Dosage: 3 WEEKS ADM FOLLOWED BY A 2 WEEK BREAK  CHANGED TO 120 MG/D FOR 2 WEEKS FOLLOWED BY A 2 WEEK BREAK.
  3. GEMCITABINE [Concomitant]
     Dosage: ADMINISTERED ON DAYS 1 AND 15

REACTIONS (3)
  - CHEILITIS [None]
  - DYSGEUSIA [None]
  - STOMATITIS [None]
